FAERS Safety Report 6636044-9 (Version None)
Quarter: 2010Q1

REPORT INFORMATION
  Report Type: 
  Country: None (occurrence: None)
  Receive Date: 20100225
  Receipt Date: 20090127
  Transmission Date: 20100710
  Serious: Yes (Other)
  Sender: FDA-Public Use
  Company Number: US-JNJFOC-20090100357

PATIENT
  Age: 71 Year
  Sex: Male
  Weight: 65.7716 kg

DRUGS (10)
  1. IBUPROFEN [Suspect]
     Indication: BACK PAIN
     Dosage: 800 MG, 1 IN 1 AS NECESSARY; SEE IMAGE
     Dates: start: 20081230, end: 20081230
  2. IBUPROFEN [Suspect]
     Indication: BACK PAIN
     Dosage: 800 MG, 1 IN 1 AS NECESSARY; SEE IMAGE
     Dates: start: 20040101
  3. MYLANTA MAXIMUM STRENGTH CHERRY (ALUMINUM HYDROXIDE/MAGNESIUM HYDROXID [Suspect]
     Indication: ABDOMINAL DISTENSION
     Dosage: 20 ML, 2 IN 1 DAY, ORAL
     Route: 048
     Dates: start: 20081230, end: 20081230
  4. MYLANTA MAXIMUM STRENGTH CHERRY (ALUMINUM HYDROXIDE/MAGNESIUM HYDROXID [Suspect]
     Indication: DYSPEPSIA
     Dosage: 20 ML, 2 IN 1 DAY, ORAL
     Route: 048
     Dates: start: 20081230, end: 20081230
  5. LORAZEPAM [Concomitant]
  6. OMEPRAZOLE [Concomitant]
  7. SIMVASTATIN [Concomitant]
  8. AVODART [Concomitant]
  9. COMBIGAN (COMBIGAN) [Concomitant]
  10. AZOPT [Concomitant]

REACTIONS (1)
  - URTICARIA [None]
